FAERS Safety Report 19019944 (Version 1)
Quarter: 2021Q1

REPORT INFORMATION
  Report Type: Report from Study
  Country: NL (occurrence: NL)
  Receive Date: 20210317
  Receipt Date: 20210317
  Transmission Date: 20210420
  Serious: Yes (Hospitalization)
  Sender: FDA-Public Use
  Company Number: NL-ROCHE-2786527

PATIENT
  Age: 75 Year
  Sex: Female

DRUGS (3)
  1. TEYSUNO [Suspect]
     Active Substance: GIMERACIL\OTERACIL\TEGAFUR
     Dosage: THERAPY START DATE: 23/FEB/2021
     Route: 065
  2. BEVACIZUMAB. [Suspect]
     Active Substance: BEVACIZUMAB
     Indication: COLORECTAL CANCER METASTATIC
     Route: 065
  3. TEYSUNO [Suspect]
     Active Substance: GIMERACIL\OTERACIL\TEGAFUR
     Indication: COLORECTAL CANCER METASTATIC
     Dosage: DATE OF MOST RECENT DOSE OF GIMERACIL;OTERACIL POTASSIUM;TEGAFUR PRIOR TO ONSET OF SAE: 25/JAN/2021
     Route: 065

REACTIONS (4)
  - Speech disorder [Recovered/Resolved]
  - Aphasia [Recovered/Resolved]
  - Eye pain [Recovered/Resolved]
  - Cerebral infarction [Recovered/Resolved]

NARRATIVE: CASE EVENT DATE: 20210210
